FAERS Safety Report 15239766 (Version 1)
Quarter: 2018Q3

REPORT INFORMATION
  Report Type: Spontaneous
  Country: US (occurrence: US)
  Receive Date: 20180710
  Receipt Date: 20180710
  Transmission Date: 20181010
  Serious: Yes (Other)
  Sender: FDA-Public Use
  Company Number: None

PATIENT
  Age: 84 Year
  Sex: Male
  Weight: 90 kg

DRUGS (16)
  1. FINASTERIDE. [Concomitant]
     Active Substance: FINASTERIDE
  2. LEVOCARNITINE. [Concomitant]
     Active Substance: LEVOCARNITINE
  3. ALFUZOSIN [Concomitant]
     Active Substance: ALFUZOSIN
  4. METAXALONE. [Concomitant]
     Active Substance: METAXALONE
  5. AMLODIPINE?OLMESARTAN [Concomitant]
  6. DHEA [Concomitant]
     Active Substance: PRASTERONE
  7. CALCIUM CARBONATE. [Concomitant]
     Active Substance: CALCIUM CARBONATE
  8. FENOFIBRATE. [Concomitant]
     Active Substance: FENOFIBRATE
  9. METFORMIN [Concomitant]
     Active Substance: METFORMIN HYDROCHLORIDE
  10. CLOPIDOGREL [Concomitant]
     Active Substance: CLOPIDOGREL BISULFATE
  11. NORCO [Concomitant]
     Active Substance: ACETAMINOPHEN\HYDROCODONE BITARTRATE
  12. OMEGA 3?6?9 [Concomitant]
     Active Substance: FISH OIL
  13. ZYTIGA [Suspect]
     Active Substance: ABIRATERONE ACETATE
     Indication: PROSTATE CANCER
     Route: 048
     Dates: start: 20180323, end: 20180709
  14. GLIPIZIDE. [Concomitant]
     Active Substance: GLIPIZIDE
  15. POTASSIUM [Concomitant]
     Active Substance: POTASSIUM
  16. TRAMADOL. [Concomitant]
     Active Substance: TRAMADOL

REACTIONS (1)
  - Disease progression [None]
